FAERS Safety Report 7185304-4 (Version None)
Quarter: 2010Q4

REPORT INFORMATION
  Report Type: 
  Country: None (occurrence: None)
  Receive Date: 20101222
  Receipt Date: 20101210
  Transmission Date: 20110411
  Serious: Yes (Hospitalization)
  Sender: FDA-Public Use
  Company Number: US-EISAI INC.-E3810-04303-SPO-US

PATIENT
  Sex: Female
  Weight: 62 kg

DRUGS (5)
  1. ACIPHEX [Suspect]
     Indication: DUODENAL ULCER
     Route: 048
     Dates: start: 20100701
  2. RAMIPRIL [Concomitant]
     Route: 048
  3. ZOLOFT [Concomitant]
     Indication: DEPRESSION
     Route: 048
  4. LIPITOR [Concomitant]
     Indication: BLOOD CHOLESTEROL
     Route: 048
  5. XANAX [Concomitant]
     Indication: DEPRESSION
     Route: 048

REACTIONS (3)
  - ABDOMINAL DISCOMFORT [None]
  - HOSPITALISATION [None]
  - HYPERTENSION [None]
